FAERS Safety Report 21922733 (Version 1)
Quarter: 2023Q1

REPORT INFORMATION
  Report Type: Spontaneous
  Country: MY (occurrence: MY)
  Receive Date: 20230128
  Receipt Date: 20230128
  Transmission Date: 20230418
  Serious: Yes (Death, Life-Threatening, Other)
  Sender: FDA-Public Use
  Company Number: MY-MLMSERVICE-2023011940506531

PATIENT
  Age: 5 Decade
  Sex: Female

DRUGS (6)
  1. CARBOPLATIN [Suspect]
     Active Substance: CARBOPLATIN
     Indication: Ewing^s sarcoma metastatic
     Dosage: CUMULATIVE DOSE: 01 CYCLICAL
  2. ETOPOSIDE [Suspect]
     Active Substance: ETOPOSIDE
     Indication: Metastases to lung
     Dosage: CUMULATIVE DOSE: 01 CYCLICAL
  3. IFOSFAMIDE [Suspect]
     Active Substance: IFOSFAMIDE
     Indication: Ewing^s sarcoma metastatic
     Dosage: CUMULATIVE DOSE: 01 CYCLICAL
  4. IFOSFAMIDE [Suspect]
     Active Substance: IFOSFAMIDE
     Indication: Metastases to lung
     Dosage: CUMULATIVE DOSE: 01 CYCLICAL
  5. CARBOPLATIN [Suspect]
     Active Substance: CARBOPLATIN
     Indication: Metastases to lung
     Dosage: CUMULATIVE DOSE: 01 CYCLICAL
  6. ETOPOSIDE [Suspect]
     Active Substance: ETOPOSIDE
     Indication: Ewing^s sarcoma metastatic
     Dosage: CUMULATIVE DOSE: 01 CYCLICAL

REACTIONS (4)
  - Metabolic acidosis [Fatal]
  - Multiple organ dysfunction syndrome [Fatal]
  - Neutropenic sepsis [Fatal]
  - Off label use [Unknown]
